FAERS Safety Report 9118722 (Version 2)
Quarter: 2013Q1

REPORT INFORMATION
  Report Type: Spontaneous
  Country: CH (occurrence: CH)
  Receive Date: 20130226
  Receipt Date: 20130311
  Transmission Date: 20140127
  Serious: Yes (Hospitalization)
  Sender: FDA-Public Use
  Company Number: CH-BAYER-2013-024646

PATIENT
  Sex: Male

DRUGS (6)
  1. BETAFERON [Suspect]
     Indication: MULTIPLE SCLEROSIS
     Dosage: 8 MIU, QOD
     Route: 058
     Dates: start: 20120508
  2. GLUCOPHAGE [Concomitant]
     Indication: DIABETES MELLITUS
  3. DIAMICRON [Concomitant]
     Indication: DIABETES MELLITUS
  4. LIORESAL [Concomitant]
     Indication: MUSCLE SPASMS
  5. SIRDALUD [Concomitant]
     Indication: MUSCLE SPASMS
  6. GREFEN [Concomitant]
     Indication: PREMEDICATION
     Dosage: 600 MG, UNK

REACTIONS (2)
  - Rectal abscess [Not Recovered/Not Resolved]
  - Impaired healing [None]
